FAERS Safety Report 7316311-6 (Version None)
Quarter: 2011Q1

REPORT INFORMATION
  Report Type: 
  Country: None (occurrence: None)
  Receive Date: 20110225
  Receipt Date: 20110216
  Transmission Date: 20110831
  Serious: Yes (Hospitalization)
  Sender: FDA-Public Use
  Company Number: US-ASTRAZENECA-2011SE09255

PATIENT
  Age: 600 Month
  Sex: Male
  Weight: 93 kg

DRUGS (3)
  1. HYDROCODONE BITARTRATE [Concomitant]
  2. CRESTOR [Suspect]
     Indication: BLOOD CHOLESTEROL INCREASED
     Route: 048
     Dates: start: 20030101
  3. LYRICA [Concomitant]

REACTIONS (4)
  - SLEEP APNOEA SYNDROME [None]
  - WEIGHT DECREASED [None]
  - NECK PAIN [None]
  - FALL [None]
